FAERS Safety Report 10232344 (Version 1)
Quarter: 2014Q2

REPORT INFORMATION
  Report Type: Spontaneous
  Country: US (occurrence: None)
  Receive Date: 20140610
  Receipt Date: 20140610
  Transmission Date: 20141212
  Serious: Yes (Disabling)
  Sender: FDA-Public Use
  Company Number: None

PATIENT
  Age: 64 Year
  Sex: Male
  Weight: 81.65 kg

DRUGS (2)
  1. PREDNISONE [Suspect]
     Indication: PAIN IN EXTREMITY
     Dosage: 20 MG/TABLET, 2 TABS ORALLY, 2/DAY, MOUTH
     Route: 048
     Dates: start: 20140303, end: 20140430
  2. PREDNISONE [Suspect]
     Indication: PAIN IN EXTREMITY
     Dosage: 20 MG/TABLET, 2 TABS ORALLY, 2/DAY, MOUTH
     Route: 048
     Dates: start: 20140303, end: 20140430

REACTIONS (4)
  - Muscle spasms [None]
  - Muscle spasms [None]
  - Arthralgia [None]
  - Pain in extremity [None]
